FAERS Safety Report 5602188-3 (Version None)
Quarter: 2008Q1

REPORT INFORMATION
  Report Type: 
  Country: None (occurrence: None)
  Receive Date: 20080125
  Receipt Date: 20080115
  Transmission Date: 20080703
  Serious: Yes (Other)
  Sender: FDA-Public Use
  Company Number: US-ASTRAZENECA-2006UW23982

PATIENT
  Age: 10986 Day
  Sex: Female
  Weight: 98.2 kg

DRUGS (15)
  1. SEROQUEL [Suspect]
     Indication: DEPRESSION
     Route: 048
  2. SEROQUEL [Suspect]
     Indication: MOOD SWINGS
     Route: 048
  3. ABILIFY [Concomitant]
  4. GEODON [Concomitant]
  5. HALDOL [Concomitant]
  6. RISPERDAL [Concomitant]
  7. STELAZINE [Concomitant]
  8. THORAZINE [Concomitant]
  9. TRILAFON [Concomitant]
  10. ZYPREXA [Concomitant]
  11. MELLARIL [Concomitant]
  12. BUSPAR [Concomitant]
  13. XANAX [Concomitant]
  14. PROZAC [Concomitant]
  15. LITHIUM CARBONATE [Concomitant]

REACTIONS (6)
  - BLOOD TRIGLYCERIDES INCREASED [None]
  - DIABETES MELLITUS [None]
  - DIABETIC COMA [None]
  - NEUROPATHY PERIPHERAL [None]
  - PREMATURE MENOPAUSE [None]
  - PSEUDODEMENTIA [None]
